FAERS Safety Report 8532735-3 (Version None)
Quarter: 2012Q3

REPORT INFORMATION
  Report Type: 
  Country: None (occurrence: None)
  Receive Date: 20120724
  Receipt Date: 20120718
  Transmission Date: 20120928
  Serious: Yes (Other)
  Sender: FDA-Public Use
  Company Number: PHEH2012US014170

PATIENT
  Sex: Female

DRUGS (1)
  1. RECLAST [Suspect]
     Dosage: UNK UKN, UNK
     Route: 042
     Dates: start: 20080618

REACTIONS (4)
  - DENTAL CARIES [None]
  - TOOTH DISCOLOURATION [None]
  - TOOTH ABSCESS [None]
  - TOOTH FRACTURE [None]
